FAERS Safety Report 21488209 (Version 11)
Quarter: 2022Q4

REPORT INFORMATION
  Report Type: Spontaneous
  Country: DE (occurrence: DE)
  Receive Date: 20221020
  Receipt Date: 20221212
  Transmission Date: 20230113
  Serious: Yes (Hospitalization, Other)
  Sender: FDA-Public Use
  Company Number: DE-MODERNATX, INC.-MOD-2022-658254

PATIENT
  Age: 69 Year
  Sex: Female

DRUGS (24)
  1. HUMIRA [Suspect]
     Active Substance: ADALIMUMAB
     Indication: Psoriasis
     Dosage: TIME INTERVAL: 14 CYCLICAL: 40 MG, CYCLIC (EVERY 14 DAYS)
     Route: 058
     Dates: start: 20171213, end: 20220918
  2. DESLORATADINE [Concomitant]
     Active Substance: DESLORATADINE
     Indication: Drug hypersensitivity
     Dosage: UNK
  3. DESLORATADINE [Concomitant]
     Active Substance: DESLORATADINE
     Indication: Drug hypersensitivity
     Dosage: UNK
     Route: 065
  4. DESLORATADINE [Concomitant]
     Active Substance: DESLORATADINE
     Indication: Drug hypersensitivity
     Dosage: UNKNOWN
     Route: 065
  5. DESLORATADINE [Concomitant]
     Active Substance: DESLORATADINE
     Indication: Drug hypersensitivity
     Route: 065
  6. DIMETHINDENE [Concomitant]
     Active Substance: DIMETHINDENE
     Indication: Urticaria
     Dosage: UNK
  7. DIMETHINDENE [Concomitant]
     Active Substance: DIMETHINDENE
     Indication: Urticaria
     Dosage: UNK
     Route: 065
  8. DIMETHINDENE [Concomitant]
     Active Substance: DIMETHINDENE
     Indication: Urticaria
     Route: 065
  9. DIMETHINDENE [Concomitant]
     Active Substance: DIMETHINDENE
     Indication: Urticaria
     Route: 065
  10. SPIKEVAX [Suspect]
     Active Substance: ELASOMERAN
     Indication: COVID-19 immunisation
     Dosage: DOSE 3/BOOSTER DOSE
     Route: 030
     Dates: start: 20211203, end: 20211203
  11. CELECOXIB [Concomitant]
     Active Substance: CELECOXIB
     Indication: Knee operation
     Dosage: 100 MILLIGRAM (EVERY 1 DAYS)
     Route: 065
  12. MOMETASONE FUROATE [Concomitant]
     Active Substance: MOMETASONE FUROATE
     Indication: Drug hypersensitivity
     Dosage: UNK
  13. MOMETASONE FUROATE [Concomitant]
     Active Substance: MOMETASONE FUROATE
     Indication: Drug hypersensitivity
     Dosage: UNK
     Route: 065
  14. MOMETASONE FUROATE [Concomitant]
     Active Substance: MOMETASONE FUROATE
     Indication: Drug hypersensitivity
     Dosage: UNK
     Route: 065
  15. MOMETASONE FUROATE [Concomitant]
     Active Substance: MOMETASONE FUROATE
     Indication: Drug hypersensitivity
     Route: 065
  16. CERAMOL C311 [Concomitant]
     Indication: Drug hypersensitivity
     Dosage: UNK
  17. CERAMOL C311 [Concomitant]
     Indication: Drug hypersensitivity
     Dosage: UNK
     Route: 065
  18. CERAMOL C311 [Concomitant]
     Indication: Drug hypersensitivity
     Dosage: UNK
     Route: 065
  19. HYDROCHLOROTHIAZIDE\VALSARTAN [Concomitant]
     Active Substance: HYDROCHLOROTHIAZIDE\VALSARTAN
     Indication: Hypertension
     Dosage: 80/12.5, FOR ABOUT 4 YEARS, EVERY 1 DAYS
  20. HYDROCHLOROTHIAZIDE\VALSARTAN [Concomitant]
     Active Substance: HYDROCHLOROTHIAZIDE\VALSARTAN
     Indication: Hypertension
     Dosage: 80/12.5, FOR ABOUT 4 YEARS
     Route: 065
  21. HYDROCHLOROTHIAZIDE\VALSARTAN [Concomitant]
     Active Substance: HYDROCHLOROTHIAZIDE\VALSARTAN
     Indication: Hypertension
     Dosage: UNK (80/12.5, FOR ABOUT 4 YEARS, EVERY 1 DAYS)
     Route: 065
  22. COMIRNATY [Suspect]
     Active Substance: TOZINAMERAN
     Indication: COVID-19 immunisation
     Dosage: DOSE 2, SINGLE
     Route: 030
     Dates: start: 20210205, end: 20210205
  23. COMIRNATY [Suspect]
     Active Substance: TOZINAMERAN
     Indication: COVID-19 immunisation
     Dosage: DOSE 1, SINGLE
     Route: 030
     Dates: start: 20210115, end: 20210115
  24. MODERNA COVID-19 VACCINE [Suspect]
     Active Substance: ELASOMERAN
     Indication: COVID-19 immunisation
     Dosage: TIME INTERVAL: TOTAL: DOSE 3 (BOOSTER), SINGLE
     Route: 030
     Dates: start: 20211203, end: 20211203

REACTIONS (15)
  - Interchange of vaccine products [Unknown]
  - Psoriatic arthropathy [Not Recovered/Not Resolved]
  - Hypertension [Not Recovered/Not Resolved]
  - Finger deformity [Not Recovered/Not Resolved]
  - Intervertebral disc protrusion [Not Recovered/Not Resolved]
  - Drug hypersensitivity [Not Recovered/Not Resolved]
  - Arthropathy [Not Recovered/Not Resolved]
  - COVID-19 immunisation [Unknown]
  - Blood pressure systolic increased [Unknown]
  - Osteoarthritis [Recovered/Resolved]
  - Psoriasis [Not Recovered/Not Resolved]
  - Urticaria [Not Recovered/Not Resolved]
  - Finger deformity [Not Recovered/Not Resolved]
  - Osteoarthritis [Recovering/Resolving]
  - Drug hypersensitivity [Not Recovered/Not Resolved]

NARRATIVE: CASE EVENT DATE: 20180101
